FAERS Safety Report 16745212 (Version 1)
Quarter: 2019Q3

REPORT INFORMATION
  Report Type: Report from Study
  Country: GB (occurrence: GB)
  Receive Date: 20190827
  Receipt Date: 20190827
  Transmission Date: 20191005
  Serious: Yes (Other)
  Sender: FDA-Public Use
  Company Number: GB-PFIZER INC-2019360488

PATIENT
  Age: 57 Year
  Sex: Male

DRUGS (2)
  1. IMRALDI [Suspect]
     Active Substance: ADALIMUMAB
     Indication: RHEUMATOID ARTHRITIS
     Dosage: 40 MG, EVERY TWO WEEKS
     Route: 058
     Dates: start: 20190402
  2. METHOTREXATE SODIUM. [Suspect]
     Active Substance: METHOTREXATE SODIUM
     Dosage: UNKNOWN
     Route: 065

REACTIONS (4)
  - Rheumatoid arthritis [Unknown]
  - Influenza like illness [Recovered/Resolved]
  - Lower respiratory tract infection [Unknown]
  - Hyperhidrosis [Unknown]
